FAERS Safety Report 7285024-1 (Version None)
Quarter: 2011Q1

REPORT INFORMATION
  Report Type: 
  Country: None (occurrence: None)
  Receive Date: 20110204
  Receipt Date: 20110204
  Transmission Date: 20110831
  Serious: Yes (Other)
  Sender: FDA-Public Use
  Company Number: None

PATIENT
  Sex: Female
  Weight: 76.6579 kg

DRUGS (4)
  1. DIAZEPAM [Suspect]
     Indication: MUSCULOSKELETAL PAIN
     Dosage: 10MG 1 BID ORAL (APPROX MONTH)
     Route: 048
     Dates: start: 19920101
  2. DIAZEPAM [Suspect]
     Indication: BACK PAIN
     Dosage: 10MG 1 BID ORAL (APPROX MONTH)
     Route: 048
     Dates: start: 19920101
  3. DIAZEPAM [Suspect]
     Indication: BONE PAIN
     Dosage: 10MG 1 BID ORAL (APPROX MONTH)
     Route: 048
     Dates: start: 19920101
  4. DIAZEPAM [Suspect]
     Indication: MUSCLE SPASMS
     Dosage: 10MG 1 BID ORAL (APPROX MONTH)
     Route: 048
     Dates: start: 19920101

REACTIONS (4)
  - MUSCLE SPASMS [None]
  - PRODUCT SUBSTITUTION ISSUE [None]
  - DRUG INEFFECTIVE [None]
  - NAUSEA [None]
